FAERS Safety Report 6241036-8 (Version None)
Quarter: 2009Q2

REPORT INFORMATION
  Report Type: 
  Country: None (occurrence: None)
  Receive Date: 20090623
  Receipt Date: 20090616
  Transmission Date: 20091009
  Serious: Yes (Death, Life-Threatening, Hospitalization)
  Sender: FDA-Public Use
  Company Number: DE-AVENTIS-200910480DE

PATIENT
  Age: 50 Year
  Sex: Male

DRUGS (11)
  1. TAXOTERE [Suspect]
     Route: 042
     Dates: start: 20090211, end: 20090211
  2. CISPLATIN [Suspect]
     Route: 042
     Dates: start: 20090211, end: 20090211
  3. DEXAMETHASONE TAB [Concomitant]
     Indication: DRUG USE FOR UNKNOWN INDICATION
     Dosage: DOSE: NOT REPORTED
  4. EMEND [Concomitant]
     Indication: DRUG USE FOR UNKNOWN INDICATION
     Dosage: DOSE: NOT REPORTED
  5. KEVATRIL [Concomitant]
     Indication: DRUG USE FOR UNKNOWN INDICATION
     Dosage: DOSE: NOT REPORTED
  6. ARCOXIA [Concomitant]
     Indication: DRUG USE FOR UNKNOWN INDICATION
     Dosage: DOSE: 1-0-0
  7. LYRICA [Concomitant]
     Indication: DRUG USE FOR UNKNOWN INDICATION
     Dosage: DOSE: 75-0-150
  8. OXYGESIC [Concomitant]
     Indication: DRUG USE FOR UNKNOWN INDICATION
  9. LASIX [Concomitant]
     Indication: DRUG USE FOR UNKNOWN INDICATION
  10. PANTOZOL                           /01263202/ [Concomitant]
     Indication: DRUG USE FOR UNKNOWN INDICATION
  11. FORTECORTIN                        /00016001/ [Concomitant]
     Indication: DRUG USE FOR UNKNOWN INDICATION

REACTIONS (1)
  - RESPIRATORY FAILURE [None]
